FAERS Safety Report 5852919-2 (Version None)
Quarter: 2008Q3

REPORT INFORMATION
  Report Type: 
  Country: None (occurrence: None)
  Receive Date: 20080821
  Receipt Date: 20080813
  Transmission Date: 20090109
  Serious: Yes (Other)
  Sender: FDA-Public Use
  Company Number: US-ASTRAZENECA-2008UW16591

PATIENT
  Age: 61 Year
  Sex: Female
  Weight: 90.3 kg

DRUGS (12)
  1. ARIMIDEX [Suspect]
     Indication: BREAST CANCER FEMALE
     Route: 048
     Dates: start: 20031201
  2. METHOTREXATE SODIUM [Concomitant]
     Dosage: INJ QWEEKLY
  3. NABUMETONE [Concomitant]
     Dosage: BID
  4. LEUCOVORIN CALCIUM [Concomitant]
     Dosage: BID
  5. METOPROLOL TARTRATE [Concomitant]
     Route: 048
  6. LISINOPRIL [Concomitant]
     Route: 048
  7. LASIX [Concomitant]
  8. LIPITOR [Concomitant]
  9. POTASSIUM CHLORIDE [Concomitant]
     Dosage: 8MEQ, 2 TABS BID
  10. EFFEXOR [Concomitant]
  11. ASPIRIN [Concomitant]
  12. AMITRIPTYLINE HCL [Concomitant]

REACTIONS (2)
  - RHEUMATOID ARTHRITIS [None]
  - WEIGHT INCREASED [None]
